FAERS Safety Report 6916313-5 (Version None)
Quarter: 2010Q3

REPORT INFORMATION
  Report Type: 
  Country: None (occurrence: None)
  Receive Date: 20100810
  Receipt Date: 20100729
  Transmission Date: 20110219
  Serious: Yes (Other)
  Sender: FDA-Public Use
  Company Number: US-PFIZER INC-2010096370

PATIENT
  Sex: Female

DRUGS (1)
  1. SOMAVERT [Suspect]

REACTIONS (4)
  - BLOOD SODIUM DECREASED [None]
  - CARDIAC FAILURE CONGESTIVE [None]
  - INSULIN-LIKE GROWTH FACTOR INCREASED [None]
  - OVERDOSE [None]
